FAERS Safety Report 4863806-0 (Version None)
Quarter: 2005Q4

REPORT INFORMATION
  Report Type: 
  Country: None (occurrence: None)
  Receive Date: 20051222
  Receipt Date: 20050912
  Transmission Date: 20060501
  Serious: Yes (Other)
  Sender: FDA-Public Use
  Company Number: US-GLAXOSMITHKLINE-A0573869A

PATIENT
  Age: 72 Year
  Sex: Female

DRUGS (5)
  1. FLONASE [Suspect]
     Dosage: 2SPR PER DAY
     Route: 045
     Dates: start: 20050908
  2. PLENDIL [Concomitant]
  3. ASPIRIN [Concomitant]
  4. DIGOXIN [Concomitant]
  5. LEVOTHROID [Concomitant]

REACTIONS (1)
  - EPISTAXIS [None]
